FAERS Safety Report 9033479 (Version 1)
Quarter: 2013Q1

REPORT INFORMATION
  Report Type: Spontaneous
  Country: IE (occurrence: IE)
  Receive Date: 20130128
  Receipt Date: 20130128
  Transmission Date: 20140127
  Serious: Yes (Hospitalization)
  Sender: FDA-Public Use
  Company Number: IE-AMGEN-IRLSP2011057270

PATIENT
  Sex: Male

DRUGS (4)
  1. ARANESP [Suspect]
     Indication: ANAEMIA
     Dosage: 500 MUG, Q3WK
     Route: 058
     Dates: start: 20101020
  2. GLUCOPHAGE [Concomitant]
  3. DIAMICRON [Concomitant]
  4. CENTYL [Concomitant]

REACTIONS (1)
  - Neoplasm malignant [Not Recovered/Not Resolved]
